FAERS Safety Report 11256207 (Version 5)
Quarter: 2018Q3

REPORT INFORMATION
  Report Type: Spontaneous
  Country: US (occurrence: US)
  Receive Date: 20150709
  Receipt Date: 20180918
  Transmission Date: 20181010
  Serious: Yes (Death, Hospitalization)
  Sender: FDA-Public Use
  Company Number: US-DSJP-DSU-2015-120996

PATIENT

DRUGS (3)
  1. BENICAR [Suspect]
     Active Substance: OLMESARTAN MEDOXOMIL
     Dosage: 40 MG, QD
     Route: 048
     Dates: start: 20100128, end: 20130923
  2. BENICAR [Suspect]
     Active Substance: OLMESARTAN MEDOXOMIL
     Indication: HYPERTENSION
     Dosage: 20 MG, QD
     Route: 048
     Dates: start: 20100128
  3. BENICAR HCT [Suspect]
     Active Substance: HYDROCHLOROTHIAZIDE\OLMESARTAN MEDOXOMIL
     Indication: HYPERTENSION
     Dosage: 40/12.5 MG, UNK
     Route: 048
     Dates: start: 20090123, end: 20091120

REACTIONS (5)
  - Renal failure [Fatal]
  - Sprue-like enteropathy [Not Recovered/Not Resolved]
  - Constipation [Unknown]
  - Pulmonary oedema [Fatal]
  - Pneumonia [Fatal]

NARRATIVE: CASE EVENT DATE: 2009
